FAERS Safety Report 4532704-4 (Version None)
Quarter: 2004Q4

REPORT INFORMATION
  Report Type: 
  Country: None (occurrence: None)
  Receive Date: 20041221
  Receipt Date: 20041208
  Transmission Date: 20050328
  Serious: Yes (Other)
  Sender: FDA-Public Use
  Company Number: PL-JNJFOC-20041202125

PATIENT
  Age: 29 Year
  Sex: Male
  Weight: 40 kg

DRUGS (4)
  1. REMICADE [Suspect]
     Indication: CROHN'S DISEASE
     Dosage: ONE DAY.
     Route: 042
  2. MESALAMINE [Concomitant]
     Indication: CROHN'S DISEASE
     Route: 049
  3. METHYLPREDNISOLONE [Concomitant]
     Indication: CROHN'S DISEASE
     Route: 049
  4. LANSOPRAZOLE [Concomitant]
     Indication: GASTROINTESTINAL ULCER
     Route: 049

REACTIONS (2)
  - ABSCESS [None]
  - ENTEROCUTANEOUS FISTULA [None]
